FAERS Safety Report 9199773 (Version 1)
Quarter: 2013Q1

REPORT INFORMATION
  Report Type: Spontaneous
  Country: US (occurrence: None)
  Receive Date: 20130328
  Receipt Date: 20130328
  Transmission Date: 20140127
  Serious: Yes (Hospitalization)
  Sender: FDA-Public Use
  Company Number: None

PATIENT
  Age: 34 Year
  Sex: Female
  Weight: 43.8 kg

DRUGS (1)
  1. CLOMIPHENE [Suspect]
     Indication: INFERTILITY
     Dosage: UNKNOWN DOSE DAILY PO
     Route: 048

REACTIONS (2)
  - Grand mal convulsion [None]
  - Cerebrovascular accident [None]
